FAERS Safety Report 4943229-6 (Version None)
Quarter: 2006Q1

REPORT INFORMATION
  Report Type: 
  Country: None (occurrence: None)
  Receive Date: 20060314
  Receipt Date: 20060127
  Transmission Date: 20060701
  Serious: Yes (Hospitalization)
  Sender: FDA-Public Use
  Company Number: JP-ROCHE-434564

PATIENT
  Age: 28 Year
  Sex: Female
  Weight: 64 kg

DRUGS (11)
  1. TAMIFLU [Suspect]
     Route: 048
     Dates: start: 20060126, end: 20060126
  2. CRAVIT [Suspect]
     Indication: INFECTION PROPHYLAXIS
     Dosage: FORM REPORTED AS ORAL FORMULATION.
     Route: 048
     Dates: start: 20060126, end: 20060126
  3. DECADRON SRC [Concomitant]
     Route: 041
     Dates: start: 20060126
  4. NEOPHYLLIN [Concomitant]
     Route: 041
     Dates: start: 20060126
  5. KIPRES [Concomitant]
     Route: 048
  6. MUCODYNE [Concomitant]
     Route: 048
  7. THEO-DUR [Concomitant]
     Route: 048
  8. QVAR 40 [Concomitant]
     Route: 055
     Dates: start: 20040515
  9. HYPEN [Concomitant]
     Dosage: TAKEN AS NEEDED
     Route: 048
     Dates: start: 20040815
  10. RISUMIC [Concomitant]
     Route: 048
     Dates: start: 20050816
  11. CLARITHROMYCIN [Concomitant]
     Route: 048
     Dates: start: 20060126

REACTIONS (2)
  - ASTHMA [None]
  - NAUSEA [None]
